FAERS Safety Report 8544490-1 (Version None)
Quarter: 2012Q3

REPORT INFORMATION
  Report Type: 
  Country: None (occurrence: None)
  Receive Date: 20120727
  Receipt Date: 20120717
  Transmission Date: 20120928
  Serious: Yes (Other)
  Sender: FDA-Public Use
  Company Number: US-SANOFI-AVENTIS-2012SA051074

PATIENT
  Sex: Male

DRUGS (10)
  1. AMLODIPINE [Concomitant]
  2. PLAVIX [Suspect]
     Indication: ANTIPLATELET THERAPY
     Route: 048
     Dates: start: 20010101, end: 20120701
  3. CORRECTOL /OLD FORM/ [Concomitant]
  4. CODEINE [Concomitant]
  5. SILDENAFIL CITRATE [Concomitant]
  6. ALL OTHER THERAPEUTIC PRODUCTS [Concomitant]
  7. PLAVIX [Suspect]
     Indication: CORONARY ARTERY DISEASE
     Route: 048
     Dates: start: 20010101, end: 20120701
  8. ALL OTHER THERAPEUTIC PRODUCTS [Concomitant]
  9. LIPITOR [Concomitant]
  10. CARVEDILOL [Concomitant]

REACTIONS (3)
  - CONTUSION [None]
  - HAEMORRHAGE [None]
  - CORONARY ARTERY OCCLUSION [None]
